FAERS Safety Report 21457085 (Version 2)
Quarter: 2022Q4

REPORT INFORMATION
  Report Type: Spontaneous
  Country: US (occurrence: US)
  Receive Date: 20221014
  Receipt Date: 20221125
  Transmission Date: 20230113
  Serious: Yes (Hospitalization)
  Sender: FDA-Public Use
  Company Number: US-UNITED THERAPEUTICS-UNT-2022-023387

PATIENT
  Sex: Female

DRUGS (6)
  1. REMODULIN [Suspect]
     Active Substance: TREPROSTINIL
     Indication: Pulmonary arterial hypertension
     Dosage: UNK, CONTINUING
     Route: 058
     Dates: start: 20220419
  2. REMODULIN [Suspect]
     Active Substance: TREPROSTINIL
     Dosage: 0.03976 ?G/KG, CONTINUING
     Route: 058
     Dates: start: 2022
  3. REMODULIN [Suspect]
     Active Substance: TREPROSTINIL
     Dosage: 0.032 ?G/KG, CONTINUING
     Route: 058
  4. REMODULIN [Suspect]
     Active Substance: TREPROSTINIL
     Dosage: 0.03211 ?G/KG, CONTINUING (PREFILLED WITH 2ML PER CASSETTE/CARTRIDGE AT PUMP RATE 21 UL/HOUR)
     Route: 058
  5. REMODULIN [Suspect]
     Active Substance: TREPROSTINIL
     Indication: Pulmonary arterial hypertension
     Dosage: 0.032 ?G/KG, CONTINUING
     Route: 041
     Dates: start: 202210, end: 2022
  6. UPTRAVI [Suspect]
     Active Substance: SELEXIPAG
     Indication: Product used for unknown indication
     Dosage: UNK
     Route: 065
     Dates: start: 202211

REACTIONS (10)
  - Device failure [Unknown]
  - Hypotension [Unknown]
  - Diarrhoea [Unknown]
  - Device issue [Unknown]
  - Device malfunction [Unknown]
  - Product administration interrupted [Recovered/Resolved]
  - Infusion site pain [Unknown]
  - Infusion site erythema [Unknown]
  - Pain in jaw [Unknown]
  - Headache [Unknown]

NARRATIVE: CASE EVENT DATE: 20220101
